FAERS Safety Report 21752651 (Version 1)
Quarter: 2022Q4

REPORT INFORMATION
  Report Type: Spontaneous
  Country: US (occurrence: None)
  Receive Date: 20221219
  Receipt Date: 20221219
  Transmission Date: 20230113
  Serious: No
  Sender: FDA-Public Use
  Company Number: None

PATIENT
  Age: 79 Year
  Sex: Female
  Weight: 51.26 kg

DRUGS (14)
  1. CYCLOSPORINE [Suspect]
     Active Substance: CYCLOSPORINE
     Indication: Anaemia
     Dosage: FREQUENCY : TWICE A DAY;?
     Route: 048
  2. ALPHA LIPOIC ACID [Concomitant]
     Active Substance: .ALPHA.-LIPOIC ACID
  3. BIOTIN [Concomitant]
     Active Substance: BIOTIN
  4. Calcium Citrate-Mag-Minerals [Concomitant]
  5. CeraVe External Lotion [Concomitant]
  6. CLOBETASOL PROPIONATE [Concomitant]
     Active Substance: CLOBETASOL PROPIONATE
  7. COENZYME Q10 [Concomitant]
     Active Substance: DIETARY SUPPLEMENT\UBIDECARENONE
  8. Iron Magnesium [Concomitant]
  9. neuro-mag (magnesium) [Concomitant]
  10. L-Threonate [Concomitant]
  11. NITROGLYCERIN [Concomitant]
     Active Substance: NITROGLYCERIN
  12. Novolin N Subcutaneous [Concomitant]
  13. Oliver Leaf Extra Refresh [Concomitant]
  14. VITAMIN D [Concomitant]
     Active Substance: VITAMIN D NOS

REACTIONS (2)
  - Diarrhoea [None]
  - Haemoglobin decreased [None]
